FAERS Safety Report 19401876 (Version 3)
Quarter: 2022Q1

REPORT INFORMATION
  Report Type: Spontaneous
  Country: US (occurrence: US)
  Receive Date: 20210611
  Receipt Date: 20220118
  Transmission Date: 20220423
  Serious: No
  Sender: FDA-Public Use
  Company Number: US-BRISTOL-MYERS SQUIBB COMPANY-BMS-2021-056804

PATIENT
  Age: 60 Year
  Sex: Female

DRUGS (4)
  1. ORENCIA [Suspect]
     Active Substance: ABATACEPT
     Indication: Rheumatoid arthritis
     Dosage: 125 MILLIGRAM, QWK
     Route: 058
     Dates: start: 20191213
  2. ORENCIA [Suspect]
     Active Substance: ABATACEPT
     Indication: Rheumatoid arthritis
     Dosage: 125 MILLIGRAM, QWK
     Route: 058
     Dates: start: 20191213
  3. ORENCIA [Suspect]
     Active Substance: ABATACEPT
     Dosage: 125 MG/ML, EVERY WEEK
     Route: 058
     Dates: start: 20200109
  4. ORENCIA [Suspect]
     Active Substance: ABATACEPT
     Dosage: 125 MG/ML, EVERY WEEK
     Route: 058
     Dates: start: 20200109

REACTIONS (5)
  - Pruritus [Unknown]
  - Burning sensation [Unknown]
  - Pain [Not Recovered/Not Resolved]
  - Joint swelling [Unknown]
  - Oedema peripheral [Not Recovered/Not Resolved]
